FAERS Safety Report 25600291 (Version 1)
Quarter: 2025Q3

REPORT INFORMATION
  Report Type: Spontaneous
  Country: US (occurrence: US)
  Receive Date: 20250724
  Receipt Date: 20250724
  Transmission Date: 20251021
  Serious: Yes (Life-Threatening, Hospitalization, Other)
  Sender: AMGEN
  Company Number: US-AMGEN-USASP2025140805

PATIENT
  Age: 34 Year
  Sex: Female

DRUGS (4)
  1. ROMIPLOSTIM [Suspect]
     Active Substance: ROMIPLOSTIM
     Indication: Thrombocytopenia
     Route: 065
  2. RITUXIMAB [Suspect]
     Active Substance: RITUXIMAB
     Indication: Immune thrombocytopenia
     Route: 065
  3. Immunoglobulin [Concomitant]
  4. ELTROMBOPAG [Concomitant]
     Active Substance: ELTROMBOPAG

REACTIONS (5)
  - Haemothorax [Unknown]
  - Von Willebrand^s disease [Unknown]
  - Thrombocytosis [Unknown]
  - Drug ineffective for unapproved indication [Unknown]
  - Off label use [Unknown]
